FAERS Safety Report 6597781-8 (Version None)
Quarter: 2010Q1

REPORT INFORMATION
  Report Type: 
  Country: None (occurrence: None)
  Receive Date: 20100216
  Receipt Date: 20100209
  Transmission Date: 20100710
  Serious: Yes (Other)
  Sender: FDA-Public Use
  Company Number: 2010SP007831

PATIENT
  Age: 83 Year
  Sex: Female
  Weight: 42.1845 kg

DRUGS (9)
  1. TEMODAR [Suspect]
     Indication: NEUROENDOCRINE TUMOUR
     Dates: start: 20090601
  2. XELODA [Suspect]
     Indication: NEUROENDOCRINE TUMOUR
     Dosage: 1000 MG; BID; PO
     Route: 048
     Dates: start: 20090601
  3. XELODA [Suspect]
     Indication: NEUROENDOCRINE TUMOUR
     Dosage: 1000 MG; BID; PO
     Route: 048
     Dates: start: 20100114
  4. HYZAAR [Suspect]
     Indication: DRUG USE FOR UNKNOWN INDICATION
  5. DETROL LA [Concomitant]
  6. SIMVASTATIN [Concomitant]
  7. CALCIUM [Concomitant]
  8. FISH OIL [Concomitant]
  9. VITAMIN B-12 [Concomitant]

REACTIONS (5)
  - DRY EYE [None]
  - HYPOTENSION [None]
  - PHOTOPHOBIA [None]
  - SKIN FISSURES [None]
  - WEIGHT DECREASED [None]
